FAERS Safety Report 17801885 (Version 1)
Quarter: 2020Q2

REPORT INFORMATION
  Report Type: Spontaneous
  Country: US (occurrence: US)
  Receive Date: 20200518
  Receipt Date: 20200518
  Transmission Date: 20200714
  Serious: Yes (Other)
  Sender: FDA-Public Use
  Company Number: None

PATIENT
  Age: 34 Year
  Sex: Female
  Weight: 46.7 kg

DRUGS (1)
  1. REMDESIVIR. [Suspect]
     Active Substance: REMDESIVIR
     Indication: COVID-19
     Dosage: ?          OTHER FREQUENCY:ONCE;?
     Route: 042
     Dates: start: 20200515

REACTIONS (8)
  - Hyperhidrosis [None]
  - Body temperature increased [None]
  - Blood pressure increased [None]
  - Nausea [None]
  - Heart rate increased [None]
  - Respiratory rate increased [None]
  - Oxygen saturation decreased [None]
  - Anxiety [None]

NARRATIVE: CASE EVENT DATE: 20200515
